FAERS Safety Report 24068861 (Version 1)
Quarter: 2024Q3

REPORT INFORMATION
  Report Type: Report from Study
  Country: US (occurrence: US)
  Receive Date: 20240710
  Receipt Date: 20240710
  Transmission Date: 20241017
  Serious: No
  Sender: ROCHE
  Company Number: US-ROCHE-3457388

PATIENT
  Age: 74 Year
  Sex: Female

DRUGS (1)
  1. ALECENSA [Suspect]
     Active Substance: ALECTINIB HYDROCHLORIDE
     Indication: Lung neoplasm malignant
     Dosage: 23-JUN-2021?TAKE 4 CAPSULES (600 MG) BY MOUTH TWICE DAILY WITH FOOD #240 PER 30 DAYS
     Route: 048

REACTIONS (1)
  - Arteriosclerosis [Unknown]
